FAERS Safety Report 6431355-4 (Version None)
Quarter: 2009Q4

REPORT INFORMATION
  Report Type: 
  Country: None (occurrence: None)
  Receive Date: 20091105
  Receipt Date: 20091105
  Transmission Date: 20100525
  Serious: Yes (Other)
  Sender: FDA-Public Use
  Company Number: None

PATIENT
  Age: 74 Year
  Sex: Male
  Weight: 86.1834 kg

DRUGS (1)
  1. AGGRENOX [Suspect]
     Dosage: 1 CAPSULE 2 TIMES DAY

REACTIONS (6)
  - DYSARTHRIA [None]
  - HEADACHE [None]
  - HEMIPARESIS [None]
  - MICTURITION DISORDER [None]
  - TINNITUS [None]
  - VISUAL IMPAIRMENT [None]
